FAERS Safety Report 12878253 (Version 2)
Quarter: 2018Q3

REPORT INFORMATION
  Report Type: Spontaneous
  Country: FR (occurrence: FR)
  Receive Date: 20161024
  Receipt Date: 20180823
  Transmission Date: 20181010
  Serious: Yes (Other)
  Sender: FDA-Public Use
  Company Number: FR-JNJFOC-20161019446

PATIENT
  Age: 62 Year
  Sex: Male
  Weight: 74 kg

DRUGS (5)
  1. INFLECTRA [Suspect]
     Active Substance: INFLIXIMAB-DYYB
     Indication: PSORIASIS
     Route: 042
     Dates: start: 20160425, end: 20160425
  2. BIPRETERAX [Concomitant]
     Active Substance: INDAPAMIDE\PERINDOPRIL
     Route: 065
     Dates: start: 201503
  3. METOJECT [Suspect]
     Active Substance: METHOTREXATE SODIUM
     Indication: PSORIASIS
     Route: 058
     Dates: start: 201406, end: 201709
  4. SPECIAFOLDINE [Concomitant]
     Active Substance: FOLIC ACID
     Route: 065
     Dates: start: 201406
  5. REMICADE [Suspect]
     Active Substance: INFLIXIMAB
     Indication: PSORIASIS
     Route: 042
     Dates: start: 20150831, end: 20160222

REACTIONS (1)
  - Angioimmunoblastic T-cell lymphoma [Recovered/Resolved]

NARRATIVE: CASE EVENT DATE: 201606
